FAERS Safety Report 4597209-3 (Version None)
Quarter: 2005Q1

REPORT INFORMATION
  Report Type: 
  Country: None (occurrence: None)
  Receive Date: 20050301
  Receipt Date: 20050217
  Transmission Date: 20050727
  Serious: Yes (Disabling)
  Sender: FDA-Public Use
  Company Number: 2005SE00975

PATIENT
  Age: 53 Year
  Sex: Male

DRUGS (4)
  1. AMIAS [Suspect]
     Indication: HYPERTENSION
     Dosage: 4 MG DAILY PO
     Route: 048
     Dates: start: 20020820, end: 20040311
  2. AMIAS [Suspect]
     Indication: HYPERTENSION
     Dosage: 8 MG DAILY PO
     Route: 048
     Dates: start: 20040311, end: 20040601
  3. AMIAS [Suspect]
     Indication: HYPERTENSION
     Dosage: 16 MG DAILY PO
     Route: 048
     Dates: start: 20040601
  4. ASPIRIN [Concomitant]

REACTIONS (2)
  - CONDUCTION DISORDER [None]
  - POLYNEUROPATHY [None]
